FAERS Safety Report 6520902-X (Version None)
Quarter: 2009Q4

REPORT INFORMATION
  Report Type: 
  Country: None (occurrence: None)
  Receive Date: 20091229
  Receipt Date: 20091217
  Transmission Date: 20100525
  Serious: Yes (Hospitalization)
  Sender: FDA-Public Use
  Company Number: JP-PFIZER INC-2009284242

PATIENT
  Age: 58 Year
  Sex: Female
  Weight: 57 kg

DRUGS (7)
  1. CELECOX [Suspect]
     Indication: PERIARTHRITIS
     Dosage: 100 MG, 2X/DAY
     Route: 048
     Dates: start: 20090811, end: 20091005
  2. MYONAL [Suspect]
     Indication: PERIARTHRITIS
     Dosage: 75 MG, 2X/DAY
     Route: 048
     Dates: start: 20090811, end: 20091005
  3. MUCOSTA [Suspect]
     Indication: PERIARTHRITIS
     Dosage: 100 MG, 2X/DAY
     Route: 048
     Dates: start: 20090811, end: 20091005
  4. HERBAL PREPARATION [Suspect]
     Indication: PERIARTHRITIS
     Dosage: 2.5 G, 2X/DAY
     Route: 048
     Dates: start: 20090811, end: 20091005
  5. BASEN [Concomitant]
     Dosage: UNK
     Dates: start: 20081203
  6. AMARYL [Concomitant]
     Dosage: UNK
     Dates: start: 20070220
  7. FELBINAC [Concomitant]
     Dosage: UNK
     Dates: start: 20090811

REACTIONS (1)
  - ANAPHYLACTIC SHOCK [None]
